FAERS Safety Report 6581859-9 (Version None)
Quarter: 2010Q1

REPORT INFORMATION
  Report Type: 
  Country: None (occurrence: None)
  Receive Date: 20100215
  Receipt Date: 20100115
  Transmission Date: 20100710
  Serious: No
  Sender: FDA-Public Use
  Company Number: US-BAYER-201010921BCC

PATIENT
  Age: 84 Year
  Sex: Female
  Weight: 58 kg

DRUGS (8)
  1. ALEVE (CAPLET) [Suspect]
     Indication: SCIATICA
     Dosage: TOTAL DAILY DOSE: 880 MG  UNIT DOSE: 220 MG
     Route: 048
     Dates: start: 20090901, end: 20091201
  2. ALEVE (CAPLET) [Suspect]
     Dosage: TOTAL DAILY DOSE: 440 MG  UNIT DOSE: 220 MG
     Route: 048
     Dates: start: 20091201
  3. BENADRYL [Concomitant]
     Route: 065
  4. NATURE MADE VITAMIN E [Concomitant]
     Dosage: TOTAL DAILY DOSE: 200 IU  UNIT DOSE: 200 IU
     Route: 065
  5. NATURE BOUNTY VITAMIN C [Concomitant]
     Dosage: TOTAL DAILY DOSE: 500 MG  UNIT DOSE: 500 MG
     Route: 065
  6. GENERIC ZOCOR [Concomitant]
     Route: 065
  7. OSCAL ULTRA PLUS D [Concomitant]
     Dosage: TOTAL DAILY DOSE: 1 DF  UNIT DOSE: 1 DF
     Route: 065
  8. KROGER BRAND SENIOR MULTI-VITAMIN [Concomitant]
     Route: 065

REACTIONS (1)
  - BLOOD PRESSURE INCREASED [None]
